FAERS Safety Report 16347089 (Version 1)
Quarter: 2019Q3

REPORT INFORMATION
  Report Type: Spontaneous
  Country: US (occurrence: US)
  Receive Date: 20190522
  Receipt Date: 20190522
  Transmission Date: 20191004
  Serious: Yes (Disabling)
  Sender: FDA-Public Use
  Company Number: None

PATIENT
  Age: 48 Year
  Sex: Female
  Weight: 65.25 kg

DRUGS (9)
  1. FIBER CAPS [Concomitant]
     Active Substance: CALCIUM POLYCARBOPHIL
  2. VITAMIN B-COMPLEX [Concomitant]
     Active Substance: DEXPANTHENOL\NIACINAMIDE\PYRIDOXINE HYDROCHLORIDE\RIBOFLAVIN 5^-PHOSPHATE SODIUM\THIAMINE HYDROCHLORIDE
  3. SUBOXONE [Suspect]
     Active Substance: BUPRENORPHINE HYDROCHLORIDE\NALOXONE HYDROCHLORIDE
     Indication: DRUG DEPENDENCE
     Dosage: ?          QUANTITY:45 FILM;OTHER ROUTE:UNDER TONGUE?
     Route: 060
     Dates: end: 20190203
  4. BIOTIN [Concomitant]
     Active Substance: BIOTIN
  5. MAGNESIUM [Concomitant]
     Active Substance: MAGNESIUM
  6. VITAMIN D3 [Concomitant]
     Active Substance: CHOLECALCIFEROL
  7. MOTRIN [Concomitant]
     Active Substance: IBUPROFEN
  8. FISH OIL CAPS VITAMIN E [Concomitant]
  9. CYMBALTA [Concomitant]
     Active Substance: DULOXETINE HYDROCHLORIDE

REACTIONS (26)
  - Asthenia [None]
  - Impaired work ability [None]
  - Mental disorder [None]
  - Feeling of despair [None]
  - Depression [None]
  - Anxiety [None]
  - Amnesia [None]
  - Pain [None]
  - Fatigue [None]
  - Back pain [None]
  - Hyperhidrosis [None]
  - Suicidal ideation [None]
  - Feeling of body temperature change [None]
  - Abdominal pain [None]
  - Decreased appetite [None]
  - Weight decreased [None]
  - Insomnia [None]
  - Withdrawal syndrome [None]
  - Illusion [None]
  - Taste disorder [None]
  - Loss of libido [None]
  - Alopecia [None]
  - Apathy [None]
  - Pruritus [None]
  - Urinary retention [None]
  - Menorrhagia [None]

NARRATIVE: CASE EVENT DATE: 20190329
